FAERS Safety Report 18048762 (Version 2)
Quarter: 2020Q3

REPORT INFORMATION
  Report Type: Spontaneous
  Country: US (occurrence: US)
  Receive Date: 20200721
  Receipt Date: 20200730
  Transmission Date: 20201103
  Serious: No
  Sender: FDA-Public Use
  Company Number: US-BAYER-2020-145507

PATIENT
  Age: 49 Year
  Sex: Female

DRUGS (2)
  1. ESTRADIOL HEMIHYDRATE [Suspect]
     Active Substance: ESTRADIOL HEMIHYDRATE
     Route: 062
  2. ESTRADIOL HEMIHYDRATE + LEVONORGESTREL [Suspect]
     Active Substance: ESTRADIOL HEMIHYDRATE\LEVONORGESTREL
     Route: 062

REACTIONS (3)
  - Product adhesion issue [None]
  - Hypersensitivity [None]
  - Application site rash [None]
